FAERS Safety Report 14649558 (Version 1)
Quarter: 2018Q1

REPORT INFORMATION
  Report Type: Spontaneous
  Country: SE (occurrence: SE)
  Receive Date: 20180316
  Receipt Date: 20180316
  Transmission Date: 20180509
  Serious: Yes (Hospitalization)
  Sender: FDA-Public Use
  Company Number: SE-TEVA-2018-SE-869011

PATIENT
  Age: 55 Year
  Sex: Male

DRUGS (15)
  1. MYCOPHENOLATE MOFETIL. [Suspect]
     Active Substance: MYCOPHENOLATE MOFETIL
     Indication: RENAL TRANSPLANT
     Route: 065
  2. MYCOPHENOLATE MOFETIL. [Suspect]
     Active Substance: MYCOPHENOLATE MOFETIL
     Dosage: TABLET+ CAPSULES
     Route: 065
  3. ARANESP [Concomitant]
     Active Substance: DARBEPOETIN ALFA
  4. FELODIPINE. [Concomitant]
     Active Substance: FELODIPINE
  5. FURIX [Concomitant]
     Active Substance: FUROSEMIDE
  6. FOLACIN [Concomitant]
     Active Substance: FOLIC ACID
  7. TROMBYL [Concomitant]
     Active Substance: ASPIRIN
  8. KALCIPOS [Concomitant]
     Active Substance: CALCIUM CARBONATE
  9. PREDNISOLONE. [Concomitant]
     Active Substance: PREDNISOLONE
  10. INOLAXOL [Concomitant]
     Active Substance: HERBALS\KARAYA GUM
  11. MYCOPHENOLATE MOFETIL. [Suspect]
     Active Substance: MYCOPHENOLATE MOFETIL
     Route: 065
  12. BEHEPAN [Concomitant]
     Active Substance: HYDROXOCOBALAMIN
  13. ETALPHA [Concomitant]
     Active Substance: ALFACALCIDOL
  14. DOXAZOSIN [Concomitant]
     Active Substance: DOXAZOSIN\DOXAZOSIN MESYLATE
  15. NULOJIX [Concomitant]
     Active Substance: BELATACEPT

REACTIONS (3)
  - Diarrhoea [Recovered/Resolved]
  - Vomiting [Recovered/Resolved]
  - Impaired gastric emptying [Recovered/Resolved]
